FAERS Safety Report 24215058 (Version 1)
Quarter: 2024Q3

REPORT INFORMATION
  Report Type: Spontaneous
  Country: US (occurrence: US)
  Receive Date: 20240816
  Receipt Date: 20240816
  Transmission Date: 20241017
  Serious: Yes (Death, Other)
  Sender: ADVANZ PHARMA
  Company Number: US-ADVANZ PHARMA-202406004773

PATIENT

DRUGS (1)
  1. PHOTOFRIN [Suspect]
     Active Substance: PORFIMER SODIUM
     Dosage: UNK

REACTIONS (1)
  - Tracheo-oesophageal fistula [Fatal]
